FAERS Safety Report 20695101 (Version 1)
Quarter: 2022Q2

REPORT INFORMATION
  Report Type: Report from Study
  Country: IT (occurrence: IT)
  Receive Date: 20220411
  Receipt Date: 20220411
  Transmission Date: 20220720
  Serious: Yes (Other)
  Sender: FDA-Public Use
  Company Number: None

PATIENT
  Age: 57 Year
  Sex: Female
  Weight: 67 kg

DRUGS (4)
  1. GEMCITABINE [Suspect]
     Active Substance: GEMCITABINE
     Indication: Adenocarcinoma pancreas
     Dosage: STRENGTH: 100 MG / ML
     Route: 042
     Dates: start: 20210126, end: 20210716
  2. CAPECITABINE [Suspect]
     Active Substance: CAPECITABINE
     Indication: Adenocarcinoma pancreas
     Dosage: STRENGTH: 500 MG
     Route: 048
     Dates: start: 20210126
  3. CISPLATIN [Concomitant]
     Active Substance: CISPLATIN
     Indication: Adenocarcinoma pancreas
     Dosage: STRENGTH: 1 MG / ML, CONCENTRATE FOR SOLUTION
     Route: 042
     Dates: start: 20210126
  4. ABRAXANE [Concomitant]
     Active Substance: PACLITAXEL
     Indication: Adenocarcinoma pancreas
     Dosage: STRENGTH: 5 MG / ML, POWDER FOR SUSPENSION FOR INFUSION
     Route: 042
     Dates: start: 20210126

REACTIONS (3)
  - Abdominal pain [Recovering/Resolving]
  - Thrombocytopenia [Recovering/Resolving]
  - Off label use [Unknown]

NARRATIVE: CASE EVENT DATE: 20210716
